FAERS Safety Report 9309610 (Version 1)
Quarter: 2013Q2

REPORT INFORMATION
  Report Type: Spontaneous
  Country: US (occurrence: US)
  Receive Date: 20130525
  Receipt Date: 20130525
  Transmission Date: 20140414
  Serious: No
  Sender: FDA-Public Use
  Company Number: US-BRISTOL-MYERS SQUIBB COMPANY-17483256

PATIENT
  Age: 84 Year
  Sex: Female
  Weight: 86.17 kg

DRUGS (4)
  1. BYDUREON [Suspect]
     Indication: TYPE 2 DIABETES MELLITUS
     Dosage: EXENATIDE LONG ACTING RELEASE
     Route: 058
     Dates: start: 20130303
  2. BYETTA [Suspect]
     Indication: TYPE 2 DIABETES MELLITUS
     Dosage: TOTAL DOSE:300UG?MAR2012:5UG?UNK-2MAR13:10UG
     Route: 058
     Dates: start: 201203, end: 20130302
  3. METFORMIN [Concomitant]
     Indication: TYPE 2 DIABETES MELLITUS
     Route: 048
  4. PRADAXA [Concomitant]
     Route: 048

REACTIONS (1)
  - Injection site haemorrhage [Recovered/Resolved]
